FAERS Safety Report 7914647-9 (Version None)
Quarter: 2011Q4

REPORT INFORMATION
  Report Type: 
  Country: None (occurrence: None)
  Receive Date: 20111115
  Receipt Date: 20111108
  Transmission Date: 20120403
  Serious: Yes (Other)
  Sender: FDA-Public Use
  Company Number: PHEH2011US08108

PATIENT
  Sex: Female

DRUGS (9)
  1. RECLAST [Suspect]
     Dosage: UNK
     Route: 042
     Dates: start: 20110501
  2. SIMVASTATIN [Concomitant]
  3. ASPIRIN [Concomitant]
  4. EXELON [Concomitant]
  5. METFORMIN HCL [Concomitant]
  6. MULTI-VITAMIN [Concomitant]
  7. GABAPENTIN [Concomitant]
  8. RECLAST [Suspect]
     Indication: OSTEOPOROSIS
     Dosage: UNK
     Route: 042
     Dates: start: 20100201
  9. CARBIDOPA + LEVODOPA [Concomitant]

REACTIONS (3)
  - CYSTITIS [None]
  - TOOTH INFECTION [None]
  - TOOTH FRACTURE [None]
